FAERS Safety Report 11032447 (Version 1)
Quarter: 2015Q2

REPORT INFORMATION
  Report Type: Spontaneous
  Country: US (occurrence: US)
  Receive Date: 20150415
  Receipt Date: 20150415
  Transmission Date: 20150821
  Serious: Yes (Other)
  Sender: FDA-Public Use
  Company Number: US-ENDO PHARMACEUTICALS INC.-201410124

PATIENT
  Age: 63 Year
  Sex: Male
  Weight: 77.63 kg

DRUGS (3)
  1. TESTIM [Suspect]
     Active Substance: TESTOSTERONE
     Indication: HYPOGONADISM
     Route: 062
     Dates: start: 20130202
  2. TESTOSTERONE. [Suspect]
     Active Substance: TESTOSTERONE
  3. TESTIM [Suspect]
     Active Substance: TESTOSTERONE
     Dosage: 1/2 TUBE
     Route: 062
     Dates: start: 2012, end: 2013

REACTIONS (5)
  - Economic problem [None]
  - Cerebrovascular accident [Unknown]
  - Anxiety [None]
  - Mental disorder [None]
  - Pain [None]

NARRATIVE: CASE EVENT DATE: 20130615
